FAERS Safety Report 16485686 (Version 1)
Quarter: 2019Q2

REPORT INFORMATION
  Report Type: Spontaneous
  Country: US (occurrence: US)
  Receive Date: 20190627
  Receipt Date: 20190627
  Transmission Date: 20190711
  Serious: No
  Sender: FDA-Public Use
  Company Number: US-SA-2018SA183177

PATIENT
  Age: 73 Year
  Sex: Male

DRUGS (1)
  1. PRALUENT [Suspect]
     Active Substance: ALIROCUMAB
     Dosage: UNK
     Dates: start: 20180120, end: 20180701

REACTIONS (1)
  - Injection site mass [Recovering/Resolving]

NARRATIVE: CASE EVENT DATE: 20180701
